FAERS Safety Report 16213270 (Version 1)
Quarter: 2019Q2

REPORT INFORMATION
  Report Type: Spontaneous
  Country: PL (occurrence: PL)
  Receive Date: 20190418
  Receipt Date: 20190418
  Transmission Date: 20190711
  Serious: Yes (Other)
  Sender: FDA-Public Use
  Company Number: PL-TEVA-2019-PL-1038123

PATIENT
  Age: 25 Year
  Sex: Male

DRUGS (4)
  1. DOXORUBICIN EBEWE [Suspect]
     Active Substance: DOXORUBICIN
     Indication: HODGKIN^S DISEASE
     Dates: start: 20140822, end: 20140822
  2. VINBLASTIN RICHTER [Suspect]
     Active Substance: VINBLASTINE SULFATE
     Indication: HODGKIN^S DISEASE
     Route: 042
     Dates: start: 20140822, end: 20140822
  3. BLEOMEDAC [Suspect]
     Active Substance: BLEOMYCIN SULFATE
     Indication: HODGKIN^S DISEASE
     Dosage: DOSE: 21 OR 27 MILLIGRAM
     Route: 042
     Dates: start: 20140822, end: 20140822
  4. DACARBAZIN TEVA [Suspect]
     Active Substance: DACARBAZINE
     Indication: HODGKIN^S DISEASE
     Route: 042
     Dates: start: 20140822, end: 20140822

REACTIONS (1)
  - Neutropenia [Recovering/Resolving]

NARRATIVE: CASE EVENT DATE: 20140905
